FAERS Safety Report 16027415 (Version 7)
Quarter: 2023Q4

REPORT INFORMATION
  Report Type: Spontaneous
  Country: US (occurrence: US)
  Receive Date: 20190304
  Receipt Date: 20231222
  Transmission Date: 20240110
  Serious: Yes (Other)
  Sender: FDA-Public Use
  Company Number: US-PFIZER INC-2019089459

PATIENT
  Age: 60 Year
  Sex: Female

DRUGS (1)
  1. PREMPRO [Suspect]
     Active Substance: ESTROGENS, CONJUGATED\MEDROXYPROGESTERONE ACETATE
     Dosage: ONE TABLET A DAY

REACTIONS (3)
  - Amyotrophic lateral sclerosis [Unknown]
  - Dysarthria [Unknown]
  - Speech disorder [Unknown]
